FAERS Safety Report 25149824 (Version 1)
Quarter: 2025Q2

REPORT INFORMATION
  Report Type: Spontaneous
  Country: CN (occurrence: CN)
  Receive Date: 20250402
  Receipt Date: 20250402
  Transmission Date: 20250717
  Serious: Yes (Death, Other)
  Sender: ROCHE
  Company Number: CN-ROCHE-10000240032

PATIENT
  Age: 59 Year
  Sex: Male

DRUGS (2)
  1. ALECTINIB [Suspect]
     Active Substance: ALECTINIB
     Indication: Malignant fibrous histiocytoma
     Route: 048
  2. BEVACIZUMAB [Suspect]
     Active Substance: BEVACIZUMAB
     Indication: Brain oedema
     Route: 065

REACTIONS (8)
  - Metastases to central nervous system [Unknown]
  - Muscular weakness [Unknown]
  - Hypoaesthesia [Unknown]
  - Coordination abnormal [Unknown]
  - Oedema [Unknown]
  - Dyskinesia [Unknown]
  - Intracranial pressure increased [Fatal]
  - Off label use [Unknown]

NARRATIVE: CASE EVENT DATE: 20200323
